FAERS Safety Report 9582575 (Version 2)
Quarter: 2013Q4

REPORT INFORMATION
  Report Type: Spontaneous
  Country: US (occurrence: US)
  Receive Date: 20131002
  Receipt Date: 20131002
  Transmission Date: 20140711
  Serious: No
  Sender: FDA-Public Use
  Company Number: US-AMGEN-USASP2013039805

PATIENT
  Age: 55 Year
  Sex: Female
  Weight: 120.18 kg

DRUGS (8)
  1. ENBREL [Suspect]
     Indication: RHEUMATOID ARTHRITIS
     Dosage: 50 MG, QWK
     Route: 058
     Dates: start: 20130416, end: 20130501
  2. SYNTHROID [Concomitant]
     Dosage: 100 MUG, UNK
  3. LEFLUNOMIDE [Concomitant]
     Dosage: 10 MG, UNK
  4. METFORMIN [Concomitant]
     Dosage: 500 MG, UNK
  5. SIMVASTATIN [Concomitant]
     Dosage: 5 MG, UNK
  6. NOVOLIN R [Concomitant]
     Dosage: U-100, UNK
  7. AMITRIPTYLIN [Concomitant]
     Dosage: 10 MG, UNK
  8. OXYCODONE [Concomitant]
     Dosage: 15 MG, UNK

REACTIONS (1)
  - VIIth nerve paralysis [Unknown]
